FAERS Safety Report 6428266-7 (Version None)
Quarter: 2009Q4

REPORT INFORMATION
  Report Type: 
  Country: None (occurrence: None)
  Receive Date: 20091102
  Receipt Date: 20091019
  Transmission Date: 20100525
  Serious: Yes (Hospitalization, Other)
  Sender: FDA-Public Use
  Company Number: DE-1170675

PATIENT
  Age: 63 Year
  Sex: Male

DRUGS (3)
  1. FLUORESCITE [Suspect]
     Dosage: 2.5 ML (0.5 MG/SEC) INTRAVENOUS BOLUS
     Route: 040
     Dates: start: 20090729, end: 20090729
  2. METFORMIN HCL [Concomitant]
  3. INSULINE (INSULIN PORCINE) [Concomitant]

REACTIONS (7)
  - CEREBELLAR INFARCTION [None]
  - CIRCULATORY COLLAPSE [None]
  - DIZZINESS [None]
  - HYPERTENSIVE CRISIS [None]
  - NAUSEA [None]
  - SYNCOPE [None]
  - VOMITING [None]
